FAERS Safety Report 11776219 (Version 2)
Quarter: 2016Q1

REPORT INFORMATION
  Report Type: Spontaneous
  Country: US (occurrence: US)
  Receive Date: 20151125
  Receipt Date: 20160101
  Transmission Date: 20160525
  Serious: Yes (Other)
  Sender: FDA-Public Use
  Company Number: US-ROCHE-1665958

PATIENT
  Sex: Female
  Weight: 63.56 kg

DRUGS (1)
  1. ESBRIET [Suspect]
     Active Substance: PIRFENIDONE
     Indication: IDIOPATHIC PULMONARY FIBROSIS
     Dosage: WITH FOOD
     Route: 048
     Dates: start: 20151203

REACTIONS (4)
  - Sinusitis [Unknown]
  - Deafness unilateral [Unknown]
  - Dizziness [Unknown]
  - Diarrhoea [Unknown]
